FAERS Safety Report 14582163 (Version 1)
Quarter: 2018Q1

REPORT INFORMATION
  Report Type: Spontaneous
  Country: DE (occurrence: DE)
  Receive Date: 20180228
  Receipt Date: 20180228
  Transmission Date: 20180509
  Serious: Yes (Hospitalization)
  Sender: FDA-Public Use
  Company Number: DE-BAYER-1199844307

PATIENT
  Age: 45 Year
  Sex: Female

DRUGS (2)
  1. CIPROFLOXACIN. [Suspect]
     Active Substance: CIPROFLOXACIN
     Indication: SEPSIS
     Dosage: DAILY DOSE 800 MG
     Route: 042
  2. GENTAMICIN. [Concomitant]
     Active Substance: GENTAMICIN
     Indication: SEPSIS
     Dosage: 150 MG (DAILY DOSE), , INTRAVENOUS
     Route: 042

REACTIONS (3)
  - Tendon rupture [Unknown]
  - Tendon disorder [Unknown]
  - Tendon necrosis [Unknown]
